FAERS Safety Report 6524192-3 (Version None)
Quarter: 2009Q4

REPORT INFORMATION
  Report Type: 
  Country: None (occurrence: None)
  Receive Date: 20091231
  Receipt Date: 20091221
  Transmission Date: 20100525
  Serious: Yes (Hospitalization, Other)
  Sender: FDA-Public Use
  Company Number: US-ELI_LILLY_AND_COMPANY-US200911006185

PATIENT
  Sex: Female

DRUGS (19)
  1. FORTEO [Suspect]
     Indication: OSTEOPOROSIS
     Dosage: 20 UG, DAILY (1/D)
     Dates: start: 20090916
  2. FORTEO [Suspect]
     Dosage: 20 UG, DAILY (1/D)
     Dates: start: 20090919
  3. FORTEO [Suspect]
     Dosage: 20 UG, DAILY (1/D)
     Dates: start: 20090916
  4. SPIRIVA [Concomitant]
  5. LEVOXINE [Concomitant]
     Dosage: 5 MG, DAILY (1/D)
  6. FLOVENT [Concomitant]
     Dosage: UNK, 2/D
  7. OMEPRAZOLE [Concomitant]
     Indication: GASTROOESOPHAGEAL REFLUX DISEASE
  8. SIMVASTATIN [Concomitant]
     Dosage: 40 MG, UNK
  9. SINGULAIR [Concomitant]
     Dosage: 10 MG, UNK
  10. LEVOTHYROXINE SODIUM [Concomitant]
     Indication: THYROID DISORDER
     Dosage: 75 MG, UNK
  11. LISINOPRIL [Concomitant]
     Dosage: 5 MG, UNK
  12. ASPIRIN [Concomitant]
     Dosage: 81 MG, UNK
  13. CARVEDILOL [Concomitant]
     Dosage: 3.12 MG, UNK
  14. VITAMIN D [Concomitant]
  15. CALCIUM [Concomitant]
  16. FISH OIL [Concomitant]
  17. ZOCOR [Concomitant]
  18. FLUOXETINE                              /N/A/ [Concomitant]
     Dosage: 40 MG, UNKNOWN
  19. VITAMINS [Concomitant]
     Dosage: UNK, UNKNOWN

REACTIONS (13)
  - ASTHENIA [None]
  - BACK PAIN [None]
  - DYSPNOEA [None]
  - FACE INJURY [None]
  - FALL [None]
  - FATIGUE [None]
  - GAIT DISTURBANCE [None]
  - HEMIPARESIS [None]
  - INJECTION SITE HAEMATOMA [None]
  - MUSCULOSKELETAL STIFFNESS [None]
  - PAIN IN EXTREMITY [None]
  - RHINORRHOEA [None]
  - SWELLING FACE [None]
